FAERS Safety Report 24425312 (Version 1)
Quarter: 2024Q4

REPORT INFORMATION
  Report Type: Spontaneous
  Country: ID (occurrence: ID)
  Receive Date: 20241011
  Receipt Date: 20241011
  Transmission Date: 20250115
  Serious: Yes (Life-Threatening, Hospitalization)
  Sender: STRIDES
  Company Number: ID-STRIDES ARCOLAB LIMITED-2024SP013079

PATIENT
  Age: 27 Year
  Sex: Female

DRUGS (13)
  1. PREGABALIN [Suspect]
     Active Substance: PREGABALIN
     Indication: Neuralgia
     Dosage: 75 MILLIGRAM, EVERY 12 HRS
     Route: 065
  2. TRAMADOL [Suspect]
     Active Substance: TRAMADOL
     Indication: Neuralgia
     Dosage: 100 MILLIGRAM, EVERY 8 HRS
     Route: 065
  3. MORPHINE SULFATE [Suspect]
     Active Substance: MORPHINE SULFATE
     Indication: Neuralgia
     Dosage: 15 MILLIGRAM, OVER 24 HOUR
     Route: 065
  4. MORPHINE SULFATE [Suspect]
     Active Substance: MORPHINE SULFATE
     Dosage: 2 MILLIGRAM (INTERMITTENT DURING EPISODES OF BREAKTHROUGH PAIN)
     Route: 042
  5. CELECOXIB [Suspect]
     Active Substance: CELECOXIB
     Indication: Neuralgia
     Dosage: 100 MILLIGRAM, EVERY 12 HRS
     Route: 065
  6. DEXMEDETOMIDINE [Suspect]
     Active Substance: DEXMEDETOMIDINE
     Indication: Neuralgia
     Dosage: UNK, EVERY HOUR (UPTO 0.8 ?G/KG)
     Route: 065
  7. FENTANYL [Suspect]
     Active Substance: FENTANYL
     Indication: Neuralgia
     Dosage: UNK
     Route: 065
  8. KETAMINE [Suspect]
     Active Substance: KETAMINE
     Indication: Neuralgia
     Dosage: UNK
     Route: 065
  9. PROPOFOL [Suspect]
     Active Substance: PROPOFOL
     Indication: Neuralgia
     Dosage: UNK, EVERY HOUR (UP TO 100MG/HOUR)
     Route: 065
  10. DULOXETINE [Concomitant]
     Active Substance: DULOXETINE
     Indication: Neuralgia
     Dosage: UNK
     Route: 065
  11. RISPERIDONE [Concomitant]
     Active Substance: RISPERIDONE
     Indication: Neuralgia
     Dosage: UNK
     Route: 065
  12. MEROPENEM [Concomitant]
     Active Substance: MEROPENEM
     Indication: Meningitis bacterial
     Dosage: 2 GRAM, EVERY 8 HOURS
     Route: 065
  13. METHYLPREDNISOLONE [Concomitant]
     Active Substance: METHYLPREDNISOLONE
     Indication: Meningitis bacterial
     Dosage: 500 MILLIGRAM, QD
     Route: 065

REACTIONS (2)
  - Altered state of consciousness [Unknown]
  - Respiratory depression [Unknown]
